FAERS Safety Report 7315831-8 (Version None)
Quarter: 2011Q1

REPORT INFORMATION
  Report Type: 
  Country: None (occurrence: None)
  Receive Date: 20110225
  Receipt Date: 20110221
  Transmission Date: 20110831
  Serious: Yes (Life-Threatening, Hospitalization)
  Sender: FDA-Public Use
  Company Number: US-B.I. PHARMACEUTICALS,INC./RIDGEFIELD-2010-BP-15017BP

PATIENT
  Age: 82 Year
  Sex: Female
  Weight: 83.46 kg

DRUGS (5)
  1. LASIX [Concomitant]
     Dosage: 40 MG
  2. METOPROLOL SUCCINATE [Concomitant]
     Dosage: 200 MG
  3. PRADAXA [Suspect]
     Indication: ATRIAL FIBRILLATION
     Dosage: 300 MG
     Dates: start: 20101206, end: 20101208
  4. ASPIRIN [Concomitant]
     Dosage: 325 MG
  5. DIGOXIN [Concomitant]
     Dosage: 0.25 MG

REACTIONS (3)
  - LOWER GASTROINTESTINAL HAEMORRHAGE [None]
  - LARGE INTESTINAL HAEMORRHAGE [None]
  - COLON ADENOMA [None]
